FAERS Safety Report 21961995 (Version 1)
Quarter: 2023Q1

REPORT INFORMATION
  Report Type: Spontaneous
  Country: US (occurrence: None)
  Receive Date: 20230204
  Receipt Date: 20230204
  Transmission Date: 20230418
  Serious: Yes (Disabling)
  Sender: FDA-Public Use
  Company Number: None

PATIENT
  Age: 61 Year
  Sex: Female
  Weight: 59.4 kg

DRUGS (12)
  1. XGEVA [Suspect]
     Active Substance: DENOSUMAB
     Indication: Breast cancer metastatic
     Route: 058
     Dates: start: 20220417, end: 20220417
  2. XGEVA [Suspect]
     Active Substance: DENOSUMAB
     Indication: Metastases to bone
  3. PIQRAY [Concomitant]
     Active Substance: ALPELISIB
  4. oral chemotherapy [Concomitant]
  5. Living Bone [Concomitant]
  6. black seed oil [Concomitant]
  7. CONIUM MACULATUM FLOWERING TOP [Concomitant]
     Active Substance: CONIUM MACULATUM FLOWERING TOP
  8. carcinoid [Concomitant]
  9. PHYTOLACCA DECANDRA [Concomitant]
     Active Substance: PHYTOLACCA AMERICANA ROOT
  10. PROBIOTICS NOS [Concomitant]
     Active Substance: PROBIOTICS NOS
  11. STOOL SOFTENER (DOCUSATE) [Concomitant]
     Active Substance: DOCUSATE
  12. hair, skin + nail vitamins [Concomitant]

REACTIONS (2)
  - Stomatitis [None]
  - Osteonecrosis of jaw [None]

NARRATIVE: CASE EVENT DATE: 20220417
